FAERS Safety Report 21483880 (Version 6)
Quarter: 2025Q4

REPORT INFORMATION
  Report Type: Spontaneous
  Country: US (occurrence: US)
  Receive Date: 20221020
  Receipt Date: 20251016
  Transmission Date: 20260118
  Serious: Yes (Other)
  Sender: CELLTRION
  Company Number: US-CELLTRION INC.-2022US009930

PATIENT

DRUGS (4)
  1. INFLECTRA [Suspect]
     Active Substance: INFLIXIMAB-DYYB
     Indication: Sarcoidosis
     Dosage: UNK, EVERY 8 WEEKS
     Route: 042
     Dates: start: 202210
  2. INFLECTRA [Suspect]
     Active Substance: INFLIXIMAB-DYYB
     Dosage: 590 MG INTRAVENOUSLY EVERY EIGHT WEEKS
     Route: 042
     Dates: start: 20230314
  3. INFLECTRA [Suspect]
     Active Substance: INFLIXIMAB-DYYB
     Dosage: UNK
     Dates: start: 20231031
  4. INFLECTRA [Suspect]
     Active Substance: INFLIXIMAB-DYYB
     Dosage: UNK
     Route: 065
     Dates: start: 20241003

REACTIONS (13)
  - Cardiac failure [Unknown]
  - Alanine aminotransferase abnormal [Unknown]
  - Feeling abnormal [Recovered/Resolved]
  - Malaise [Unknown]
  - Heart rate irregular [Recovered/Resolved]
  - Oedema peripheral [Unknown]
  - Joint swelling [Unknown]
  - Peripheral swelling [Unknown]
  - Palpitations [Unknown]
  - Insomnia [Recovered/Resolved]
  - Product substitution issue [Unknown]
  - Intentional product use issue [Unknown]
  - Therapy interrupted [Unknown]

NARRATIVE: CASE EVENT DATE: 20230223
